FAERS Safety Report 8264815-4 (Version None)
Quarter: 2012Q2

REPORT INFORMATION
  Report Type: 
  Country: None (occurrence: None)
  Receive Date: 20120406
  Receipt Date: 20120330
  Transmission Date: 20120825
  Serious: Yes (Hospitalization)
  Sender: FDA-Public Use
  Company Number: FR-SANOFI-AVENTIS-2012SA022530

PATIENT
  Age: 29 Year
  Sex: Female

DRUGS (2)
  1. RIFADIN [Suspect]
     Route: 048
     Dates: start: 20110301, end: 20111012
  2. RIMIFON [Suspect]
     Route: 048
     Dates: start: 20110301, end: 20111012

REACTIONS (4)
  - HEPATITIS TOXIC [None]
  - OCULAR ICTERUS [None]
  - ASCITES [None]
  - HEPATIC FAILURE [None]
